FAERS Safety Report 6730539-5 (Version None)
Quarter: 2010Q2

REPORT INFORMATION
  Report Type: 
  Country: None (occurrence: None)
  Receive Date: 20100514
  Receipt Date: 20100507
  Transmission Date: 20101027
  Serious: Yes (Hospitalization)
  Sender: FDA-Public Use
  Company Number: 8046053

PATIENT
  Sex: Female
  Weight: 101 kg

DRUGS (8)
  1. CERTOLIZUMAB PEGOL (CDP870) [Suspect]
     Indication: RHEUMATOID ARTHRITIS
     Dosage: 400 MG 1X/2 WEEKS - NR OF DOSES: 26 SUBCUTANEOUS), (400 MG 1X/2WEEKS SUBCUTANEOUS ), 200 1X/ 2 WEEKS
     Route: 058
     Dates: start: 20050531, end: 20060516
  2. CERTOLIZUMAB PEGOL (CDP870) [Suspect]
     Indication: RHEUMATOID ARTHRITIS
     Dosage: 400 MG 1X/2 WEEKS - NR OF DOSES: 26 SUBCUTANEOUS), (400 MG 1X/2WEEKS SUBCUTANEOUS ), 200 1X/ 2 WEEKS
     Route: 058
     Dates: start: 20060530, end: 20071113
  3. CERTOLIZUMAB PEGOL (CDP870) [Suspect]
     Indication: RHEUMATOID ARTHRITIS
     Dosage: 400 MG 1X/2 WEEKS - NR OF DOSES: 26 SUBCUTANEOUS), (400 MG 1X/2WEEKS SUBCUTANEOUS ), 200 1X/ 2 WEEKS
     Route: 058
     Dates: start: 20071127, end: 20090428
  4. CERTOLIZUMAB PEGOL (CDP870) [Suspect]
     Indication: RHEUMATOID ARTHRITIS
     Dosage: 400 MG 1X/2 WEEKS - NR OF DOSES: 26 SUBCUTANEOUS), (400 MG 1X/2WEEKS SUBCUTANEOUS ), 200 1X/ 2 WEEKS
     Route: 058
     Dates: start: 20090526
  5. QUINAPRIL [Concomitant]
  6. SYMBICORT [Concomitant]
  7. VERAPAMIL [Concomitant]
  8. FERROUS SULFATE TAB [Concomitant]

REACTIONS (8)
  - ACINETOBACTER INFECTION [None]
  - BRONCHITIS [None]
  - CHEST PAIN [None]
  - PLEURAL EFFUSION [None]
  - PNEUMONIA [None]
  - PULMONARY TUBERCULOSIS [None]
  - TUBERCULOUS PLEURISY [None]
  - UTERINE LEIOMYOMA [None]
